FAERS Safety Report 20726409 (Version 8)
Quarter: 2023Q4

REPORT INFORMATION
  Report Type: Spontaneous
  Country: US (occurrence: US)
  Receive Date: 20220419
  Receipt Date: 20231018
  Transmission Date: 20240109
  Serious: Yes (Other)
  Sender: FDA-Public Use
  Company Number: US-BRISTOL-MYERS SQUIBB COMPANY-2022-019661

PATIENT
  Age: 74 Year
  Sex: Male

DRUGS (7)
  1. REVLIMID [Suspect]
     Active Substance: LENALIDOMIDE
     Indication: Plasma cell myeloma
     Dosage: 10 MILLIGRAM
     Route: 048
     Dates: start: 20190313
  2. REVLIMID [Suspect]
     Active Substance: LENALIDOMIDE
     Dosage: TAKE 1 CAPSULE BY MOUTH DAILY FOR 21 DAYS , 7 DAYS OFF EVERY 28 DAY CYCLE
     Route: 048
     Dates: start: 20190313
  3. REVLIMID [Suspect]
     Active Substance: LENALIDOMIDE
     Dosage: 21 DAYS, 7 DAYS OFF EVERY 28 DAY CYCLE
     Route: 048
     Dates: start: 20200605
  4. REVLIMID [Suspect]
     Active Substance: LENALIDOMIDE
     Dosage: TAKE 1 CAPSULE BY MOUTH EVERY DAY FOR 21 DAYS. THEN 7 DAYS OFF. EVERY 28 DAY CYCLE.
     Route: 048
     Dates: start: 20221206
  5. REVLIMID [Suspect]
     Active Substance: LENALIDOMIDE
     Dosage: 21 DAYS, 7 DAYS OFF EVERY 28 DAY CYCLE
     Route: 048
     Dates: start: 20221110, end: 20230101
  6. REVLIMID [Suspect]
     Active Substance: LENALIDOMIDE
     Dosage: FREQUENCY: TAKE 1 CAPSULE BY MOUTH EVERY DAY FOR 21 DAYS. THEN 7 DAYS OFF. EVERY 28 DAY CYCLE
     Route: 048
     Dates: start: 20221122, end: 20230203
  7. LENALIDOMIDE [Suspect]
     Active Substance: LENALIDOMIDE
     Indication: Plasma cell myeloma

REACTIONS (5)
  - Product dose omission issue [Unknown]
  - Muscle spasms [Recovered/Resolved]
  - Sinus congestion [Not Recovered/Not Resolved]
  - Pruritus [Not Recovered/Not Resolved]
  - Groin pain [Recovered/Resolved]
